FAERS Safety Report 7980206-5 (Version None)
Quarter: 2011Q4

REPORT INFORMATION
  Report Type: 
  Country: None (occurrence: None)
  Receive Date: 20111214
  Receipt Date: 20111207
  Transmission Date: 20120403
  Serious: Yes (Other)
  Sender: FDA-Public Use
  Company Number: US-VERTEX PHARMACEUTICALS INC.-AE-2011-004618

PATIENT
  Sex: Male
  Weight: 8.3 kg

DRUGS (4)
  1. PEGASYS [Concomitant]
     Indication: HEPATITIS C
     Dates: start: 20111021, end: 20111202
  2. RIBAVIRIN [Concomitant]
     Indication: HEPATITIS C
     Route: 048
     Dates: start: 20111021
  3. RIBAVIRIN [Concomitant]
     Route: 048
     Dates: start: 20111130
  4. INCIVEK [Suspect]
     Indication: HEPATITIS C
     Route: 048
     Dates: start: 20111021

REACTIONS (3)
  - ANAEMIA [None]
  - FATIGUE [None]
  - WHITE BLOOD CELL COUNT DECREASED [None]
